FAERS Safety Report 20855482 (Version 1)
Quarter: 2022Q2

REPORT INFORMATION
  Report Type: Spontaneous
  Country: US (occurrence: US)
  Receive Date: 20220520
  Receipt Date: 20220520
  Transmission Date: 20220721
  Serious: No
  Sender: FDA-Public Use
  Company Number: US-BRISTOL-MYERS SQUIBB COMPANY-2022-017006

PATIENT
  Sex: Male
  Weight: 78 kg

DRUGS (1)
  1. POMALYST [Suspect]
     Active Substance: POMALIDOMIDE
     Indication: Plasma cell myeloma
     Dosage: 3 WK ON 1 WK OFF
     Route: 048
     Dates: start: 2022, end: 20220301

REACTIONS (1)
  - Full blood count decreased [Not Recovered/Not Resolved]
